FAERS Safety Report 18259425 (Version 2)
Quarter: 2020Q3

REPORT INFORMATION
  Report Type: Report from Study
  Country: US (occurrence: US)
  Receive Date: 20200911
  Receipt Date: 20200924
  Transmission Date: 20201103
  Serious: No
  Sender: FDA-Public Use
  Company Number: US-JNJFOC-20200907655

PATIENT
  Age: 67 Year
  Sex: Female
  Weight: 90.35 kg

DRUGS (2)
  1. MACITENTAN [Suspect]
     Active Substance: MACITENTAN
     Indication: PULMONARY ARTERIAL HYPERTENSION
     Route: 048
     Dates: start: 20200827
  2. ADEMPAS [Concomitant]
     Active Substance: RIOCIGUAT

REACTIONS (12)
  - Fatigue [Unknown]
  - Multiple allergies [Unknown]
  - Rhinorrhoea [Unknown]
  - Poor quality sleep [Unknown]
  - Nasal congestion [Unknown]
  - Throat irritation [Unknown]
  - Vasodilatation [Unknown]
  - Headache [Unknown]
  - Cough [Unknown]
  - Influenza like illness [Unknown]
  - Paraesthesia [Unknown]
  - Pain [Unknown]

NARRATIVE: CASE EVENT DATE: 20200827
